FAERS Safety Report 15023649 (Version 1)
Quarter: 2018Q2

REPORT INFORMATION
  Report Type: Spontaneous
  Country: US (occurrence: US)
  Receive Date: 20180618
  Receipt Date: 20180618
  Transmission Date: 20180711
  Serious: No
  Sender: FDA-Public Use
  Company Number: US-SUNOVION-2018SUN002330

PATIENT
  Age: 31 Year
  Sex: Female

DRUGS (2)
  1. DICYCLOMINE [Concomitant]
     Active Substance: DICYCLOMINE HYDROCHLORIDE
     Indication: IRRITABLE BOWEL SYNDROME
  2. LATUDA [Suspect]
     Active Substance: LURASIDONE HYDROCHLORIDE
     Indication: MANIA
     Dosage: 20 MG, QD
     Route: 048

REACTIONS (3)
  - Libido decreased [Unknown]
  - Product use in unapproved indication [Unknown]
  - Bruxism [Unknown]
